FAERS Safety Report 17973549 (Version 1)
Quarter: 2020Q3

REPORT INFORMATION
  Report Type: Spontaneous
  Country: CN (occurrence: CN)
  Receive Date: 20200702
  Receipt Date: 20200702
  Transmission Date: 20201103
  Serious: Yes (Other)
  Sender: FDA-Public Use
  Company Number: CN-BAYER-2020-126355

PATIENT
  Age: 93 Year
  Sex: Male

DRUGS (26)
  1. FELODIPINE. [Concomitant]
     Active Substance: FELODIPINE
     Indication: HYPERTENSION
     Dosage: 5 MG, QD
     Route: 048
  2. ISOSORBIDE MONONITRATE. [Concomitant]
     Active Substance: ISOSORBIDE MONONITRATE
     Indication: CORONARY ARTERY DISEASE
     Dosage: UNK
     Route: 048
     Dates: start: 20190122
  3. COMPOUND METHOXYPHENAMINE [Concomitant]
     Indication: COUGH
     Dosage: 2 DF, TID
     Route: 048
     Dates: start: 20190118, end: 20190122
  4. TORASEMIDE [Concomitant]
     Active Substance: TORSEMIDE
     Indication: DIURETIC THERAPY
     Dosage: 20 MG, QD
     Route: 048
     Dates: start: 20190118
  5. CEFOXITIN SODIUM [Concomitant]
     Active Substance: CEFOXITIN SODIUM
     Indication: ANTI-INFECTIVE THERAPY
     Dosage: UNK
     Dates: start: 20190117
  6. FUDOSTEINE [Concomitant]
     Active Substance: FUDOSTEINE
     Indication: PRODUCTIVE COUGH
  7. BROMHEXINE [Concomitant]
     Active Substance: BROMHEXINE
     Indication: COUGH
     Dosage: 12 MG, BID
     Route: 041
     Dates: start: 20190118
  8. MOXIFLOXACIN IV [Suspect]
     Active Substance: MOXIFLOXACIN
     Indication: ANTI-INFECTIVE THERAPY
     Dosage: 400 MG, QD
     Route: 041
     Dates: start: 20190118, end: 20190122
  9. FUDOSTEINE [Concomitant]
     Active Substance: FUDOSTEINE
     Indication: COUGH
     Dosage: 0.4 G, TID
     Route: 048
     Dates: start: 20190118, end: 20190122
  10. SERRAPEPTASE [Concomitant]
     Active Substance: SERRAPEPTASE
     Indication: COUGH
     Dosage: 20 MG, TID
     Route: 048
     Dates: start: 20190118, end: 20190122
  11. SERRAPEPTASE [Concomitant]
     Active Substance: SERRAPEPTASE
     Indication: PRODUCTIVE COUGH
  12. SALBUTAMOL [Concomitant]
     Active Substance: ALBUTEROL
     Indication: ANTIINFLAMMATORY THERAPY
     Dosage: 5 MG, BID, AEROSOL INHALATION
     Dates: start: 20190118, end: 20190122
  13. SALBUTAMOL [Concomitant]
     Active Substance: ALBUTEROL
     Indication: BRONCHITIS CHRONIC
     Dosage: 5 MG, BID, AEROSOL INHALATION
     Dates: start: 20190128
  14. BUDESONIDE. [Concomitant]
     Active Substance: BUDESONIDE
     Indication: BRONCHITIS CHRONIC
     Dosage: AEROSOL INHALATION
     Dates: start: 20190128
  15. TORASEMIDE [Concomitant]
     Active Substance: TORSEMIDE
     Indication: SWELLING
  16. CEFEPIME [Suspect]
     Active Substance: CEFEPIME HYDROCHLORIDE
     Indication: ANTI-INFECTIVE THERAPY
     Dosage: 2 G, BID
     Route: 041
     Dates: start: 20190118, end: 20190122
  17. ACETYLSALICYLIC ACID [Suspect]
     Active Substance: ASPIRIN
     Indication: PLATELET AGGREGATION INHIBITION
     Dosage: 0.1 G, QD
     Route: 048
     Dates: start: 20190118
  18. BROMHEXINE [Concomitant]
     Active Substance: BROMHEXINE
     Indication: PRODUCTIVE COUGH
  19. VINPOCETINE [Concomitant]
     Active Substance: VINPOCETINE
     Indication: METABOLIC DISORDER
     Dosage: 20 MG, QD
     Route: 041
     Dates: start: 20190118
  20. ISOSORBIDE DINITRATE. [Concomitant]
     Active Substance: ISOSORBIDE DINITRATE
     Indication: CORONARY ARTERY DISEASE
     Dosage: 10 MG, QD
     Route: 040
     Dates: start: 20190118, end: 20190122
  21. RE DU NING ZHU SHE YE [Concomitant]
     Active Substance: HERBALS
     Indication: ANTIVIRAL TREATMENT
     Dosage: UNK
     Dates: start: 20190117
  22. BUDESONIDE. [Concomitant]
     Active Substance: BUDESONIDE
     Indication: ANTIINFLAMMATORY THERAPY
     Dosage: 1 MG, BID, AEROSOL INHALATION
     Dates: start: 20190118, end: 20190122
  23. SPIRONOLACTONE. [Concomitant]
     Active Substance: SPIRONOLACTONE
     Indication: DIURETIC THERAPY
     Dosage: 20 MG, BID
     Route: 048
     Dates: start: 20190118
  24. SPIRONOLACTONE. [Concomitant]
     Active Substance: SPIRONOLACTONE
     Indication: OEDEMA
  25. COMPOUND METHOXYPHENAMINE [Concomitant]
     Indication: PRODUCTIVE COUGH
  26. IRBESARTAN. [Concomitant]
     Active Substance: IRBESARTAN
     Indication: HYPERTENSION
     Dosage: 150 MG, QD
     Route: 048

REACTIONS (1)
  - Encephalopathy [Recovered/Resolved]

NARRATIVE: CASE EVENT DATE: 20190121
